FAERS Safety Report 6633876-8 (Version None)
Quarter: 2010Q1

REPORT INFORMATION
  Report Type: 
  Country: None (occurrence: None)
  Receive Date: 20100309
  Receipt Date: 20100223
  Transmission Date: 20100710
  Serious: Yes (Other)
  Sender: FDA-Public Use
  Company Number: IDA-00336

PATIENT
  Age: 59 Year
  Sex: Female

DRUGS (5)
  1. INDERAL [Suspect]
     Indication: HYPERTENSION
     Dosage: 40 MG BID / 40 MG BID, TABLET, ORAL
     Route: 048
     Dates: start: 19700101, end: 20100203
  2. SELOZOK (METOPROLOL SUCCINATE) STRENGTH: 50MG [Suspect]
     Indication: HYPERTENSION
     Dosage: 50 MG DAILY, ORAL FORMULATION: TABLET CONTROLLED RELEASE
     Route: 048
     Dates: start: 20100204, end: 20100219
  3. ALPRAZOLAM [Concomitant]
  4. ASPIRIN [Concomitant]
  5. AMARYL [Concomitant]

REACTIONS (5)
  - BLOOD PRESSURE INADEQUATELY CONTROLLED [None]
  - HEADACHE [None]
  - MALAISE [None]
  - THYROID NEOPLASM [None]
  - TREATMENT NONCOMPLIANCE [None]
